FAERS Safety Report 6313874-4 (Version None)
Quarter: 2009Q3

REPORT INFORMATION
  Report Type: 
  Country: None (occurrence: None)
  Receive Date: 20090817
  Receipt Date: 20090817
  Transmission Date: 20100115
  Serious: Yes (Death)
  Sender: FDA-Public Use
  Company Number: None

PATIENT
  Age: 58 Year
  Sex: Male
  Weight: 90.7194 kg

DRUGS (1)
  1. CHANTIX [Suspect]
     Indication: SMOKING CESSATION THERAPY
     Dosage: NORMAL DOSE FOR THREE MONTHS
     Dates: start: 20080809, end: 20081107

REACTIONS (7)
  - ANXIETY [None]
  - BIPOLAR DISORDER [None]
  - COMPLETED SUICIDE [None]
  - DEPRESSION [None]
  - INSOMNIA [None]
  - OVERDOSE [None]
  - SUICIDE ATTEMPT [None]
